FAERS Safety Report 6426401-8 (Version None)
Quarter: 2009Q4

REPORT INFORMATION
  Report Type: 
  Country: None (occurrence: None)
  Receive Date: 20091103
  Receipt Date: 20091103
  Transmission Date: 20100525
  Serious: Yes (Hospitalization)
  Sender: FDA-Public Use
  Company Number: None

PATIENT
  Age: 90 Year
  Sex: Male

DRUGS (2)
  1. ACETAMINOPHEN AND HYDROCODONE BITARTRATE [Suspect]
     Indication: PAIN
     Dosage: BID
     Dates: start: 20090618, end: 20090701
  2. ACETAMINOPHEN W/ PROPOXYPHENE HCL [Suspect]
     Dosage: PRN
     Dates: start: 20090618, end: 20090701

REACTIONS (2)
  - HALLUCINATION [None]
  - SCREAMING [None]
